FAERS Safety Report 7728149-6 (Version None)
Quarter: 2011Q3

REPORT INFORMATION
  Report Type: 
  Country: None (occurrence: None)
  Receive Date: 20110905
  Receipt Date: 20110901
  Transmission Date: 20111222
  Serious: Yes (Other)
  Sender: FDA-Public Use
  Company Number: DE-BRISTOL-MYERS SQUIBB COMPANY-15783517

PATIENT
  Age: 69 Year
  Sex: Male
  Weight: 79 kg

DRUGS (2)
  1. ONGLYZA [Suspect]
     Indication: TYPE 2 DIABETES MELLITUS
     Dates: start: 20090301, end: 20110504
  2. METFORMIN HCL [Suspect]

REACTIONS (2)
  - PANCREATITIS ACUTE [None]
  - PANCREATIC CYST [None]
